FAERS Safety Report 6126899-9 (Version None)
Quarter: 2009Q1

REPORT INFORMATION
  Report Type: 
  Country: None (occurrence: None)
  Receive Date: 20090320
  Receipt Date: 20081126
  Transmission Date: 20090719
  Serious: No
  Sender: FDA-Public Use
  Company Number: US-ABBOTT-08P-163-0490142-00

PATIENT
  Sex: Female

DRUGS (1)
  1. ERYTHROCIN [Suspect]
     Indication: TOOTH ABSCESS
     Route: 048
     Dates: start: 20081125

REACTIONS (2)
  - ABDOMINAL PAIN [None]
  - FLATULENCE [None]
